FAERS Safety Report 12660176 (Version 1)
Quarter: 2016Q3

REPORT INFORMATION
  Report Type: Report from Study
  Country: BR (occurrence: BR)
  Receive Date: 20160817
  Receipt Date: 20160817
  Transmission Date: 20161109
  Serious: Yes (Hospitalization, Other)
  Sender: FDA-Public Use
  Company Number: BR-ABBVIE-16P-020-1703584-00

PATIENT
  Sex: Female
  Weight: 77 kg

DRUGS (2)
  1. DRENISON [Concomitant]
     Active Substance: FLURANDRENOLIDE
     Indication: PROMOTION OF WOUND HEALING
     Dosage: DAILY DOSE: 1 ADHESIVE EVERYDAY IN THE MORNING
     Dates: start: 201606
  2. SYNTHROID [Suspect]
     Active Substance: LEVOTHYROXINE SODIUM
     Indication: HYPOTHYROIDISM
     Route: 048

REACTIONS (2)
  - Goitre [Unknown]
  - Dyspnoea [Unknown]
